FAERS Safety Report 5705246-8 (Version None)
Quarter: 2008Q2

REPORT INFORMATION
  Report Type: 
  Country: None (occurrence: None)
  Receive Date: 20080410
  Receipt Date: 20080328
  Transmission Date: 20081010
  Serious: Yes (Hospitalization)
  Sender: FDA-Public Use
  Company Number: GXKR2008DE03230

PATIENT
  Age: 40 Year
  Sex: Female

DRUGS (2)
  1. ENALAPRIL              (ENALAPRIL MALEATE) UNKNOWN [Suspect]
     Indication: HYPERTENSION
     Dosage: 5 MG,
  2. BISOPROLOL (BISOPROLOL) [Concomitant]

REACTIONS (8)
  - ABDOMINAL PAIN [None]
  - ASCITES [None]
  - EOSINOPHILIA [None]
  - LEUKOCYTOSIS [None]
  - LYMPHOCYTOSIS [None]
  - NAUSEA [None]
  - SMALL BOWEL ANGIOEDEMA [None]
  - VOMITING [None]
